FAERS Safety Report 10266095 (Version 2)
Quarter: 2014Q2

REPORT INFORMATION
  Report Type: Spontaneous
  Country: JP (occurrence: JP)
  Receive Date: 20140627
  Receipt Date: 20140627
  Transmission Date: 20141212
  Serious: Yes (Other)
  Sender: FDA-Public Use
  Company Number: JP-ASTRAZENECA-2014SE36310

PATIENT
  Age: 21518 Day
  Sex: Female

DRUGS (19)
  1. NEXIUM [Suspect]
     Indication: GASTROOESOPHAGEAL REFLUX DISEASE
     Route: 048
     Dates: start: 20140218
  2. TANKARU [Concomitant]
     Indication: ELECTROLYTE IMBALANCE
     Route: 048
  3. PROMAC [Concomitant]
     Indication: ELECTROLYTE IMBALANCE
     Route: 048
  4. KAYEXALATE [Concomitant]
     Indication: ELECTROLYTE IMBALANCE
     Route: 048
  5. FOSRENOL [Concomitant]
     Indication: ELECTROLYTE IMBALANCE
     Route: 048
  6. REMITCH [Concomitant]
     Indication: ELECTROLYTE IMBALANCE
     Route: 048
  7. REGPARA [Concomitant]
     Indication: ELECTROLYTE IMBALANCE
     Route: 048
  8. DOPS [Concomitant]
     Indication: ELECTROLYTE IMBALANCE
     Route: 048
  9. CALCITAMIN [Concomitant]
     Indication: ELECTROLYTE IMBALANCE
     Route: 048
  10. CARDENALIN [Concomitant]
     Indication: HYPERTENSION
     Route: 048
  11. LANDEL10_20 [Concomitant]
     Indication: HYPERTENSION
     Route: 048
  12. LIPITOR [Concomitant]
     Indication: HYPERLIPIDAEMIA
     Route: 048
  13. ATELEC [Concomitant]
     Indication: HYPERTENSION
     Route: 048
  14. BLOPRESS [Concomitant]
     Indication: HYPERTENSION
     Route: 048
  15. HOFVAN [Concomitant]
     Indication: ASTHMA
     Route: 048
  16. SINGULAIR [Concomitant]
     Indication: ASTHMA
     Route: 048
  17. THEODUR [Concomitant]
     Indication: ASTHMA
     Route: 048
  18. TSUMURA KEISHIBUKURYOGAN EXTRACT GRANULES FOR ETHICAL USE [Concomitant]
     Indication: HYPERTENSION
     Route: 048
  19. ARTIST [Concomitant]
     Indication: HYPERTENSION
     Route: 048

REACTIONS (1)
  - Hyperphosphataemia [Recovering/Resolving]
